FAERS Safety Report 23327371 (Version 2)
Quarter: 2024Q1

REPORT INFORMATION
  Report Type: Report from Study
  Country: CN (occurrence: CN)
  Receive Date: 20231221
  Receipt Date: 20240117
  Transmission Date: 20240410
  Serious: No
  Sender: FDA-Public Use
  Company Number: CN-PFIZER INC-PV202300204040

PATIENT
  Age: 65 Year
  Sex: Male
  Weight: 69 kg

DRUGS (4)
  1. NIRMATRELVIR\RITONAVIR [Suspect]
     Active Substance: NIRMATRELVIR\RITONAVIR
     Indication: COVID-19
     Dosage: [NIRMATRELVIR 300 MG]/[RITONAVIR 100 MG], 2X/DAY
     Route: 048
     Dates: start: 20220522, end: 20220602
  2. ASPIRIN [Concomitant]
     Active Substance: ASPIRIN
     Indication: Coronary artery disease
     Dosage: ENTENC-COATED TABLETS
     Route: 048
     Dates: start: 20220521, end: 20220602
  3. HERBALS [Concomitant]
     Active Substance: HERBALS
     Indication: Coronary artery disease
     Dosage: UNK
     Route: 048
     Dates: start: 20220521, end: 20220602
  4. ISOSORBIDE DINITRATE [Concomitant]
     Active Substance: ISOSORBIDE DINITRATE
     Indication: Coronary artery disease
     Dosage: UNK
     Route: 048
     Dates: start: 20220521, end: 20220602

REACTIONS (1)
  - Overdose [Unknown]
